FAERS Safety Report 8738250 (Version 10)
Quarter: 2014Q2

REPORT INFORMATION
  Report Type: Spontaneous
  Country: US (occurrence: US)
  Receive Date: 20120823
  Receipt Date: 20140630
  Transmission Date: 20141212
  Serious: Yes (Hospitalization, Other)
  Sender: FDA-Public Use
  Company Number: US-009507513-1208USA005658

PATIENT
  Sex: Female
  Weight: 70.43 kg

DRUGS (4)
  1. FOSAMAX [Suspect]
     Indication: OSTEOPOROSIS
     Dosage: 70 MG, QW
     Route: 048
     Dates: start: 2001, end: 2008
  2. FOSAMAX [Suspect]
     Indication: OSTEOPENIA
     Dosage: UNK
     Route: 048
     Dates: start: 2002, end: 2008
  3. FOSAMAX [Suspect]
     Indication: OSTEOPENIA
     Dosage: 70 MG, QW
     Route: 048
     Dates: start: 20090108, end: 201109
  4. ALENDRONATE SODIUM [Suspect]
     Indication: OSTEOPENIA
     Dosage: UNK
     Dates: start: 200901, end: 201109

REACTIONS (33)
  - Femur fracture [Recovered/Resolved]
  - Intramedullary rod insertion [Unknown]
  - Haemorrhagic anaemia [Unknown]
  - Meningioma [Unknown]
  - Convulsion [Unknown]
  - Transfusion [Unknown]
  - Fall [Unknown]
  - Meningioma surgery [Unknown]
  - Low turnover osteopathy [Unknown]
  - Calcium deficiency [Unknown]
  - Cataract [Unknown]
  - Intervertebral disc degeneration [Unknown]
  - Hypercholesterolaemia [Unknown]
  - Meniscus injury [Unknown]
  - Spinal fracture [Unknown]
  - Epicondylitis [Not Recovered/Not Resolved]
  - Spinal osteoarthritis [Unknown]
  - Injury [Unknown]
  - Lumbar spinal stenosis [Recovering/Resolving]
  - Scoliosis [Unknown]
  - Inappropriate schedule of drug administration [Unknown]
  - Spinal column injury [Unknown]
  - Fall [Unknown]
  - Fall [Unknown]
  - Intervertebral disc protrusion [Unknown]
  - Gait disturbance [Unknown]
  - Myopathy [Unknown]
  - Lumbar radiculopathy [Unknown]
  - Foot fracture [Unknown]
  - Drug ineffective [Unknown]
  - Oedema peripheral [Unknown]
  - Pain in extremity [Unknown]
  - Headache [Unknown]
